FAERS Safety Report 13689166 (Version 1)
Quarter: 2017Q2

REPORT INFORMATION
  Report Type: Report from Study
  Country: US (occurrence: US)
  Receive Date: 20170626
  Receipt Date: 20170626
  Transmission Date: 20170830
  Serious: Yes (Death)
  Sender: FDA-Public Use
  Company Number: US-PFIZER INC-2017272253

PATIENT
  Age: 26 Year
  Sex: Male

DRUGS (2)
  1. FENTANYL CITRATE. [Suspect]
     Active Substance: FENTANYL CITRATE
     Dosage: UNK
  2. FENTANYL. [Suspect]
     Active Substance: FENTANYL

REACTIONS (2)
  - Overdose [Fatal]
  - Toxicity to various agents [Fatal]
